FAERS Safety Report 4768743-8 (Version None)
Quarter: 2005Q3

REPORT INFORMATION
  Report Type: 
  Country: None (occurrence: None)
  Receive Date: 20050914
  Receipt Date: 20050901
  Transmission Date: 20060218
  Serious: Yes (Other)
  Sender: FDA-Public Use
  Company Number: SG-GLAXOSMITHKLINE-B0393191A

PATIENT
  Age: 40 Year
  Sex: Female

DRUGS (3)
  1. SEROXAT [Suspect]
     Dosage: 25MG PER DAY
     Dates: start: 20050712, end: 20050831
  2. XANAX [Concomitant]
     Dosage: .25MG THREE TIMES PER DAY
     Dates: start: 20050712
  3. PROPRANOLOL [Concomitant]

REACTIONS (4)
  - DRUG INTERACTION [None]
  - DYSPNOEA [None]
  - DYSTONIA [None]
  - OCULOGYRATION [None]
